FAERS Safety Report 7296270-5 (Version None)
Quarter: 2011Q1

REPORT INFORMATION
  Report Type: 
  Country: None (occurrence: None)
  Receive Date: 20110211
  Receipt Date: 20110211
  Transmission Date: 20110831
  Serious: Yes (Other)
  Sender: FDA-Public Use
  Company Number: None

PATIENT
  Age: 41 Year
  Sex: Male
  Weight: 79.3795 kg

DRUGS (1)
  1. NEURONTIN [Suspect]
     Indication: MUSCULOSKELETAL PAIN
     Dosage: 200 MG 2 X DAY PO
     Route: 048
     Dates: start: 20090801, end: 20101010

REACTIONS (1)
  - WEIGHT DECREASED [None]
